APPROVED DRUG PRODUCT: ALBALON
Active Ingredient: NAPHAZOLINE HYDROCHLORIDE
Strength: 0.1% **Federal Register determination that product was not discontinued or withdrawn for safety or effectiveness reasons**
Dosage Form/Route: SOLUTION/DROPS;OPHTHALMIC
Application: A080248 | Product #001
Applicant: ALLERGAN INC
Approved: Approved Prior to Jan 1, 1982 | RLD: No | RS: No | Type: DISCN